FAERS Safety Report 8491865-5 (Version None)
Quarter: 2012Q3

REPORT INFORMATION
  Report Type: 
  Country: None (occurrence: None)
  Receive Date: 20120706
  Receipt Date: 20110819
  Transmission Date: 20120928
  Serious: No
  Sender: FDA-Public Use
  Company Number: US-GLAXOSMITHKLINE-A0941723A

PATIENT
  Age: 77 Year
  Sex: Female

DRUGS (7)
  1. FLOVENT [Suspect]
     Indication: OBSTRUCTIVE AIRWAYS DISORDER
     Dosage: 1PUFF PER DAY
     Route: 055
     Dates: start: 20110710, end: 20110730
  2. PRILOSEC [Concomitant]
  3. LISINOPRIL [Concomitant]
  4. LIPITOR [Concomitant]
  5. EVOXAC [Concomitant]
  6. ATENOLOL [Concomitant]
  7. XANAX [Concomitant]

REACTIONS (6)
  - COUGH [None]
  - PALPITATIONS [None]
  - MIDDLE INSOMNIA [None]
  - DRUG INEFFECTIVE [None]
  - FATIGUE [None]
  - DECREASED APPETITE [None]
